FAERS Safety Report 4355668-5 (Version None)
Quarter: 2004Q2

REPORT INFORMATION
  Report Type: 
  Country: None (occurrence: None)
  Receive Date: 20040507
  Receipt Date: 20040422
  Transmission Date: 20050107
  Serious: Yes (Death, Life-Threatening)
  Sender: FDA-Public Use
  Company Number: BIVUS040005

PATIENT
  Age: 48 Year
  Sex: Female
  Weight: 116.0301 kg

DRUGS (10)
  1. ANGIOMAX [Suspect]
     Indication: ANTICOAGULANT THERAPY
     Dosage: SEE IMAGE
     Route: 040
     Dates: start: 20040202, end: 20040202
  2. ANGIOMAX [Suspect]
     Indication: ANTICOAGULANT THERAPY
     Dosage: SEE IMAGE
     Route: 040
     Dates: start: 20040202, end: 20040202
  3. LOVENOX [Suspect]
     Dosage: 80 MG ONCE SUBCUTANEOUS
     Route: 058
     Dates: start: 20040202, end: 20040202
  4. CELLCEPT [Concomitant]
  5. INTEGRILIN [Suspect]
     Dosage: 9.5 CC, HR INF IV HR INF
     Route: 042
     Dates: start: 20040202, end: 20040202
  6. CLOPIDOGREL (CLOPIDOGREL) [Suspect]
     Dosage: 600 MG ORAL
     Route: 048
     Dates: start: 20040202, end: 20040202
  7. PREDNSIONE(PREDNISONE) [Concomitant]
  8. ASPIRIN [Concomitant]
  9. CYCLOSPORINE [Concomitant]
  10. PLAVIX [Concomitant]

REACTIONS (10)
  - ACIDOSIS [None]
  - AGGRESSION [None]
  - AGITATION [None]
  - ANURIA [None]
  - COAGULOPATHY [None]
  - HAEMATOCRIT DECREASED [None]
  - HAEMORRHAGE [None]
  - HYPOTENSION [None]
  - MEDICAL DEVICE COMPLICATION [None]
  - VASCULAR INJURY [None]
